FAERS Safety Report 5849296-X (Version None)
Quarter: 2008Q3

REPORT INFORMATION
  Report Type: 
  Country: None (occurrence: None)
  Receive Date: 20080815
  Receipt Date: 20080809
  Transmission Date: 20090109
  Serious: Yes (Other)
  Sender: FDA-Public Use
  Company Number: CHPA2008US13335

PATIENT
  Age: 15 Year
  Sex: Female

DRUGS (2)
  1. NODOZ (NCH) (CAFFEINE) CAPLET [Suspect]
     Dosage: 400 MG, ONCE/SINGLE, ORAL
     Route: 048
     Dates: start: 20080808, end: 20080808
  2. ETHANOL (ETHANOL) [Suspect]
     Dates: start: 20080808

REACTIONS (3)
  - ALCOHOL USE [None]
  - INCORRECT DOSE ADMINISTERED [None]
  - TREMOR [None]
